FAERS Safety Report 17119988 (Version 1)
Quarter: 2019Q4

REPORT INFORMATION
  Report Type: Spontaneous
  Country: JP (occurrence: JP)
  Receive Date: 20191206
  Receipt Date: 20191206
  Transmission Date: 20200122
  Serious: Yes (Other)
  Sender: FDA-Public Use
  Company Number: NVSJ2019JP004633

PATIENT
  Age: 78 Year

DRUGS (1)
  1. EQUMET [Suspect]
     Active Substance: METFORMIN HYDROCHLORIDE\VILDAGLIPTIN
     Indication: PRODUCT USED FOR UNKNOWN INDICATION
     Dosage: 1 DF: METFORMIN:500MG, VILDAGLIPTIN: 50MG, UNK
     Route: 048

REACTIONS (2)
  - Renal impairment [Unknown]
  - Blood urine present [Unknown]
